FAERS Safety Report 24346877 (Version 1)
Quarter: 2024Q3

REPORT INFORMATION
  Report Type: Spontaneous
  Country: FR (occurrence: FR)
  Receive Date: 20240921
  Receipt Date: 20240921
  Transmission Date: 20241017
  Serious: Yes (Hospitalization, Other)
  Sender: AUROBINDO
  Company Number: FR-AFSSAPS-PA2024001447

PATIENT
  Age: 30 Year
  Sex: Female
  Weight: 51 kg

DRUGS (5)
  1. AMOXICILLIN [Suspect]
     Active Substance: AMOXICILLIN
     Indication: Pneumonia
     Dosage: 1 GRAM, 3 TIMES A DAY (1 GX3/J *Q8H)
     Route: 048
     Dates: start: 20240702, end: 20240704
  2. AMOXICILLIN [Suspect]
     Active Substance: AMOXICILLIN
     Dosage: 2 GRAM, 3 TIMES A DAY (2 G X3/J *Q8H)
     Route: 048
     Dates: start: 20240704, end: 20240906
  3. LINEZOLID [Suspect]
     Active Substance: LINEZOLID
     Indication: Pneumonia
     Dosage: UNK
     Route: 042
     Dates: start: 20240630, end: 20240701
  4. COTRIMOXAZOLE [Suspect]
     Active Substance: SULFAMETHOXAZOLE\TRIMETHOPRIM
     Indication: Pneumonia
     Dosage: 800 MILLIGRAM, TWO TIMES A DAY (800MG X2/J)
     Route: 048
     Dates: start: 20240702, end: 20240704
  5. COTRIMOXAZOLE [Suspect]
     Active Substance: SULFAMETHOXAZOLE\TRIMETHOPRIM
     Dosage: 800 MILLIGRAM, 3 TIMES A DAY (800MG X 3/J *Q8H)
     Route: 048
     Dates: start: 20240704, end: 20240706

REACTIONS (1)
  - Hepatocellular injury [Recovering/Resolving]

NARRATIVE: CASE EVENT DATE: 20240702
